FAERS Safety Report 4743750-X (Version None)
Quarter: 2005Q3

REPORT INFORMATION
  Report Type: 
  Country: None (occurrence: None)
  Receive Date: 20050809
  Receipt Date: 20050808
  Transmission Date: 20060218
  Serious: Yes (Hospitalization)
  Sender: FDA-Public Use
  Company Number: TCI2005A02202

PATIENT
  Age: 55 Year
  Sex: Female

DRUGS (8)
  1. LEUPROLIDE ACETATE [Suspect]
     Indication: MENORRHAGIA
     Dosage: 88 MG (1.88 MG, 1 IN 28 D)
     Route: 058
     Dates: start: 20050406, end: 20050406
  2. LEUPROLIDE ACETATE [Suspect]
     Indication: UTERINE LEIOMYOMA
     Dosage: 88 MG (1.88 MG, 1 IN 28 D)
     Route: 058
     Dates: start: 20050406, end: 20050406
  3. DIOVAN [Concomitant]
  4. LONGES (LISINOPRIL) (TABLETS) [Concomitant]
  5. RENIVACE (ENALAPRIL MALEATE) (TABLETS) [Concomitant]
  6. NORVASC [Concomitant]
  7. CALTAN (PRECIPITATED CALCIUM CARBONATE) [Concomitant]
  8. CLARITIN [Concomitant]

REACTIONS (6)
  - ASTHENIA [None]
  - CEREBROVASCULAR DISORDER [None]
  - DYSARTHRIA [None]
  - HYPOAESTHESIA [None]
  - SENSORY DISTURBANCE [None]
  - TRANSIENT ISCHAEMIC ATTACK [None]
